FAERS Safety Report 4782888-8 (Version None)
Quarter: 2005Q3

REPORT INFORMATION
  Report Type: 
  Country: None (occurrence: None)
  Receive Date: 20050928
  Receipt Date: 20050928
  Transmission Date: 20060218
  Serious: No
  Sender: FDA-Public Use
  Company Number: None

PATIENT
  Age: 77 Year
  Sex: Female
  Weight: 48.5349 kg

DRUGS (2)
  1. XELODA [Suspect]
     Indication: COLON CANCER
     Dosage: 2500 MG DAILY PO
     Route: 048
     Dates: start: 20050825, end: 20050907
  2. WARFARIN SODIUM [Suspect]
     Indication: PULMONARY EMBOLISM
     Dosage: 21MG WEEKLY PO
     Route: 048

REACTIONS (8)
  - ANOREXIA [None]
  - DIARRHOEA [None]
  - FATIGUE [None]
  - HAEMATURIA [None]
  - HAEMORRHAGIC DIATHESIS [None]
  - INTERNATIONAL NORMALISED RATIO INCREASED [None]
  - PALMAR-PLANTAR ERYTHRODYSAESTHESIA SYNDROME [None]
  - PROTHROMBIN TIME PROLONGED [None]
